FAERS Safety Report 14076340 (Version 1)
Quarter: 2017Q4

REPORT INFORMATION
  Report Type: Spontaneous
  Country: US (occurrence: US)
  Receive Date: 20171011
  Receipt Date: 20171011
  Transmission Date: 20180321
  Serious: No
  Sender: FDA-Public Use
  Company Number: US-009507513-1709USA014173

PATIENT
  Age: 64 Year
  Sex: Male

DRUGS (2)
  1. INVANZ [Suspect]
     Active Substance: ERTAPENEM SODIUM
     Indication: DEVICE RELATED INFECTION
  2. INVANZ [Suspect]
     Active Substance: ERTAPENEM SODIUM
     Indication: GRANULICATELLA INFECTION
     Dosage: 1 GM DAILY FOR 6 WEEKS
     Route: 042

REACTIONS (2)
  - Product use in unapproved indication [Unknown]
  - Drug effective for unapproved indication [Unknown]
